FAERS Safety Report 5442661-4 (Version None)
Quarter: 2007Q3

REPORT INFORMATION
  Report Type: 
  Country: None (occurrence: None)
  Receive Date: 20070830
  Receipt Date: 20070821
  Transmission Date: 20080115
  Serious: Yes (Other)
  Sender: FDA-Public Use
  Company Number: 07H-163-0313100-00

PATIENT
  Age: 20 Year
  Sex: Female

DRUGS (3)
  1. A-METHOPRED INJECTION (METHYLPREDNISOLONE SODIUM SUCCINATE) (METHYLPRE [Suspect]
     Indication: PNEUMONITIS
     Dosage: 1 GM, INTRAVENOUS
     Route: 042
  2. OXYGEN (OXYGEN) [Concomitant]
  3. STEROIDS WITH ANTIBIOTIC COVERAGE (STEROID ANTIBACTERIALS) [Concomitant]

REACTIONS (1)
  - REVERSIBLE POSTERIOR LEUKOENCEPHALOPATHY SYNDROME [None]
